FAERS Safety Report 9635125 (Version 1)
Quarter: 2013Q4

REPORT INFORMATION
  Report Type: Spontaneous
  Country: US (occurrence: US)
  Receive Date: 20131021
  Receipt Date: 20131021
  Transmission Date: 20140711
  Serious: No
  Sender: FDA-Public Use
  Company Number: US-PURDUE-USA-2013-0102765

PATIENT
  Age: 57 Year
  Sex: Female

DRUGS (6)
  1. BUTRANS [Suspect]
     Indication: ARTHRALGIA
     Dosage: 5 MCG/HR, WEEKLY
     Route: 062
     Dates: start: 20130522
  2. BUTRANS [Suspect]
     Indication: MYALGIA
  3. LYRICA [Concomitant]
     Indication: NEURALGIA
     Dosage: 50 MG, DAILY
     Route: 048
  4. PLAQUENIL                          /00072602/ [Concomitant]
     Indication: SYSTEMIC LUPUS ERYTHEMATOSUS
     Dosage: 100 MG, DAILY
     Route: 048
  5. PRAVASTATIN [Concomitant]
     Indication: BLOOD CHOLESTEROL
     Dosage: 40 MG, DAILY
     Route: 048
  6. PREVACID [Concomitant]
     Indication: GASTRIC DISORDER
     Dosage: 20 MG, DAILY
     Route: 048

REACTIONS (1)
  - Headache [Recovered/Resolved]
